FAERS Safety Report 24745521 (Version 2)
Quarter: 2025Q3

REPORT INFORMATION
  Report Type: Spontaneous
  Country: EU (occurrence: EU)
  Receive Date: 20241218
  Receipt Date: 20250803
  Transmission Date: 20251021
  Serious: Yes (Hospitalization, Other)
  Sender: ALEXION PHARMACEUTICALS
  Company Number: EU-AFSSAPS-PC2024001022

PATIENT
  Age: 51 Year
  Sex: Male

DRUGS (7)
  1. QUETIAPINE FUMARATE [Suspect]
     Active Substance: QUETIAPINE FUMARATE
     Indication: Product used for unknown indication
     Dosage: 100 MILLIGRAM, QD
     Dates: start: 20240902, end: 20240905
  2. QUETIAPINE FUMARATE [Suspect]
     Active Substance: QUETIAPINE FUMARATE
     Dosage: 50 MILLIGRAM, QD
     Dates: start: 20240905
  3. LOXAPINE [Suspect]
     Active Substance: LOXAPINE
     Indication: Product used for unknown indication
     Dosage: 25 MILLIGRAM, QD
     Dates: end: 20240902
  4. LOXAPINE [Suspect]
     Active Substance: LOXAPINE
     Dosage: 75 MILLIGRAM, QD
     Dates: start: 20240902
  5. MIANSERIN [Concomitant]
     Active Substance: MIANSERIN
  6. RISPERDAL [Concomitant]
     Active Substance: RISPERIDONE
  7. TROPATEPINE HYDROCHLORIDE [Concomitant]
     Active Substance: TROPATEPINE HYDROCHLORIDE

REACTIONS (8)
  - Neuroleptic malignant syndrome [Recovered/Resolved]
  - Extrapyramidal disorder [Recovered/Resolved]
  - Alpha haemolytic streptococcal infection [Unknown]
  - Lower respiratory tract congestion [Unknown]
  - Dehydration [Unknown]
  - Staphylococcal infection [Not Recovered/Not Resolved]
  - Proteus test positive [Unknown]
  - HTLV-1 test positive [Unknown]

NARRATIVE: CASE EVENT DATE: 20240901
